FAERS Safety Report 14122784 (Version 3)
Quarter: 2018Q1

REPORT INFORMATION
  Report Type: Report from Study
  Country: DE (occurrence: DE)
  Receive Date: 20171025
  Receipt Date: 20180313
  Transmission Date: 20180508
  Serious: Yes (Hospitalization, Other)
  Sender: FDA-Public Use
  Company Number: DE-ROCHE-2000599

PATIENT
  Age: 41 Year
  Sex: Male
  Weight: 88 kg

DRUGS (12)
  1. SILYMARIN [Concomitant]
     Active Substance: DIETARY SUPPLEMENT\HERBALS\MILK THISTLE
     Route: 048
     Dates: start: 20170825, end: 20170830
  2. BLINDED ATEZOLIZUMAB [Suspect]
     Active Substance: ATEZOLIZUMAB
     Indication: MALIGNANT MELANOMA
     Dosage: MOST RECENT DOSE ON 11/AUG/2017
     Route: 042
     Dates: start: 20170714
  3. COBIMETINIB. [Suspect]
     Active Substance: COBIMETINIB
     Indication: MALIGNANT MELANOMA
     Dosage: 60 MG (THREE, 20 MG TABLETS), ON DAYS 1 TO 21, OF EACH 28-DAY CYCLE. ?ON 22/SEP/2017, THE PATIENT RE
     Route: 048
     Dates: start: 20170602
  4. IMODIUM [Concomitant]
     Active Substance: LOPERAMIDE HYDROCHLORIDE
     Indication: DIARRHOEA
     Route: 048
     Dates: start: 20170602
  5. URBASON [Concomitant]
     Active Substance: METHYLPREDNISOLONE
     Indication: HEPATIC ENZYME INCREASED
     Route: 048
     Dates: start: 20170925, end: 20171001
  6. FLUTIFORM [Concomitant]
     Active Substance: FLUTICASONE PROPIONATE\FORMOTEROL FUMARATE
     Route: 065
     Dates: start: 20170602
  7. CURCUMIN [Concomitant]
     Active Substance: CURCUMIN
     Route: 048
     Dates: start: 20170825, end: 20170830
  8. URBASON [Concomitant]
     Active Substance: METHYLPREDNISOLONE
     Route: 048
     Dates: start: 20171007, end: 20171008
  9. PANTOZOL [Concomitant]
     Active Substance: PANTOPRAZOLE SODIUM
     Route: 048
     Dates: start: 20170927
  10. URBASON [Concomitant]
     Active Substance: METHYLPREDNISOLONE
     Route: 048
     Dates: start: 20171009, end: 20171021
  11. VEMURAFENIB. [Suspect]
     Active Substance: VEMURAFENIB
     Indication: MALIGNANT MELANOMA
     Dosage: DAILY ON DAYS 1 TO 28 OF EACH CYCLE (CYCLE = 28 DAYS)?ON 22/SEP/2017, THE PATIENT RECEIVED MOST RECE
     Route: 048
     Dates: start: 20170602
  12. URBASON [Concomitant]
     Active Substance: METHYLPREDNISOLONE
     Route: 048
     Dates: start: 20171002, end: 20171006

REACTIONS (2)
  - Autoimmune pancreatitis [Recovered/Resolved]
  - Autoimmune hepatitis [Recovered/Resolved]

NARRATIVE: CASE EVENT DATE: 20170925
